FAERS Safety Report 8901433 (Version 2)
Quarter: 2012Q4

REPORT INFORMATION
  Report Type: Report from Study
  Country: CA (occurrence: CA)
  Receive Date: 20121109
  Receipt Date: 20121119
  Transmission Date: 20130627
  Serious: Yes (Other)
  Sender: FDA-Public Use
  Company Number: CA-JNJFOC-20121017547

PATIENT
  Age: 64 None
  Sex: Male
  Weight: 81 kg

DRUGS (5)
  1. REMICADE [Suspect]
     Indication: CROHN^S DISEASE
     Dosage: 52 weeks
     Route: 042
     Dates: start: 20110518
  2. BENADRYL [Concomitant]
     Indication: PREMEDICATION
     Route: 042
  3. TYLENOL [Concomitant]
     Indication: PREMEDICATION
     Route: 048
  4. SOLU-CORTEF [Concomitant]
     Indication: PREMEDICATION
     Route: 042
  5. GRAVOL [Concomitant]
     Indication: PREMEDICATION
     Route: 065

REACTIONS (2)
  - Intestinal resection [Recovering/Resolving]
  - Post procedural infection [Recovering/Resolving]
